FAERS Safety Report 15919340 (Version 1)
Quarter: 2019Q1

REPORT INFORMATION
  Report Type: Spontaneous
  Country: JP (occurrence: JP)
  Receive Date: 20190205
  Receipt Date: 20190205
  Transmission Date: 20190417
  Serious: Yes (Hospitalization, Other)
  Sender: FDA-Public Use
  Company Number: JP-GLAXOSMITHKLINE-JP2018JPN171660

PATIENT
  Age: 53 Year
  Sex: Male
  Weight: 83 kg

DRUGS (4)
  1. OLOPATADINE HYDROCHLORIDE. [Suspect]
     Active Substance: OLOPATADINE HYDROCHLORIDE
     Indication: DERMATITIS
     Dosage: 5 MG, BID
     Route: 048
     Dates: start: 20180717, end: 20180910
  2. DOXYCYCLINE HYDROCHLORIDE HYDRATE [Suspect]
     Active Substance: DOXYCYCLINE HYDROCHLORIDE
     Indication: DERMATITIS
     Dosage: 100 MG, QD
     Route: 048
     Dates: start: 20180827, end: 20180901
  3. VALTREX [Suspect]
     Active Substance: VALACYCLOVIR HYDROCHLORIDE
     Indication: HERPES ZOSTER
     Dosage: 500 MG, BID
     Route: 048
     Dates: start: 201806, end: 201807
  4. MEQUITAZINE [Suspect]
     Active Substance: MEQUITAZINE
     Indication: DERMATITIS
     Dosage: 3 MG, BID
     Route: 048
     Dates: start: 20180806, end: 20180910

REACTIONS (9)
  - Herpes zoster [Recovered/Resolved]
  - Prescribed underdose [Unknown]
  - Product use issue [Unknown]
  - Drug-induced liver injury [Recovered/Resolved]
  - Jaundice [Unknown]
  - Viral hepatitis carrier [Unknown]
  - Malaise [Unknown]
  - Incorrect product administration duration [Unknown]
  - Drug effect incomplete [Unknown]

NARRATIVE: CASE EVENT DATE: 201806
